FAERS Safety Report 8611222-8 (Version None)
Quarter: 2012Q3

REPORT INFORMATION
  Report Type: 
  Country: None (occurrence: None)
  Receive Date: 20120803
  Receipt Date: 20120730
  Transmission Date: 20120928
  Serious: Yes (Other)
  Sender: FDA-Public Use
  Company Number: A0987504A

PATIENT
  Age: 70 Year
  Sex: Male

DRUGS (2)
  1. WARFARIN SODIUM [Concomitant]
  2. METHYLCELLULOSE (FORMULATION UNKNOWN) SUGAR FREE ORANGE (METHYLCELLULO [Suspect]
     Dosage: ORAL
     Dates: start: 20120701

REACTIONS (1)
  - INTERNATIONAL NORMALISED RATIO INCREASED [None]
